FAERS Safety Report 21813291 (Version 2)
Quarter: 2023Q1

REPORT INFORMATION
  Report Type: Spontaneous
  Country: FR (occurrence: FR)
  Receive Date: 20230103
  Receipt Date: 20230209
  Transmission Date: 20230418
  Serious: Yes (Hospitalization)
  Sender: FDA-Public Use
  Company Number: None

PATIENT
  Age: 46 Year
  Sex: Female
  Weight: 56 kg

DRUGS (1)
  1. KEYTRUDA [Suspect]
     Active Substance: PEMBROLIZUMAB
     Indication: Breast cancer
     Dosage: 200 MILLIGRAM, Q3W
     Route: 042
     Dates: start: 20220728, end: 20221027

REACTIONS (4)
  - Ischaemic stroke [Recovering/Resolving]
  - Condition aggravated [Recovering/Resolving]
  - Paraneoplastic syndrome [Recovering/Resolving]
  - Central nervous system vasculitis [Recovering/Resolving]

NARRATIVE: CASE EVENT DATE: 20220801
